FAERS Safety Report 9483448 (Version 2)
Quarter: 2013Q3

REPORT INFORMATION
  Report Type: Spontaneous
  Country: US (occurrence: US)
  Receive Date: 20130828
  Receipt Date: 20130828
  Transmission Date: 20140515
  Serious: Yes (Other)
  Sender: FDA-Public Use
  Company Number: US-ASTRAZENECA-2013SE28755

PATIENT
  Age: 74 Year
  Sex: Female
  Weight: 66.2 kg

DRUGS (10)
  1. TAMOXIFEN [Suspect]
     Indication: BREAST CANCER FEMALE
     Route: 048
     Dates: start: 2008, end: 2011
  2. ARIMIDEX [Suspect]
     Indication: BREAST CANCER FEMALE
     Route: 048
     Dates: start: 201109
  3. QUINAPRIL [Concomitant]
     Indication: HYPERTENSION
  4. METFORMIN [Concomitant]
     Indication: DIABETES MELLITUS
     Dosage: ONE HALF 500 MG DAILY
  5. GLYBURIDE [Concomitant]
     Indication: DIABETES MELLITUS
     Dosage: ONE HALF 2.5 MG DAILY
  6. ZETIA [Concomitant]
     Indication: BLOOD CHOLESTEROL ABNORMAL
  7. VITAMIN C [Concomitant]
     Indication: MEDICAL DIET
  8. CALCIUM [Concomitant]
     Indication: MEDICAL DIET
  9. MAGNESIUM WITH ZINC [Concomitant]
     Indication: MEDICAL DIET
  10. GLUCOSAMINE WITH VITAMIN D AND MSM [Concomitant]
     Indication: MEDICAL DIET

REACTIONS (5)
  - Metrorrhagia [Recovered/Resolved]
  - Uterine polyp [Recovered/Resolved]
  - Bone density increased [Recovered/Resolved]
  - Bone density decreased [Recovered/Resolved]
  - Osteoporosis [Unknown]
